FAERS Safety Report 6679284-5 (Version None)
Quarter: 2010Q2

REPORT INFORMATION
  Report Type: 
  Country: None (occurrence: None)
  Receive Date: 20100413
  Receipt Date: 20100412
  Transmission Date: 20101027
  Serious: Yes (Hospitalization, Other)
  Sender: FDA-Public Use
  Company Number: US-ROXANE LABORATORIES, INC.-2010-RO-00400RO

PATIENT
  Age: 72 Year
  Sex: Female

DRUGS (3)
  1. HYDROMORPHONE HCL [Suspect]
     Indication: BACK PAIN
     Route: 037
  2. ANTIBIOTICS [Concomitant]
     Indication: PROPHYLAXIS
     Route: 042
  3. ANTIBIOTICS [Concomitant]
     Indication: SERRATIA INFECTION
     Route: 042

REACTIONS (6)
  - DRUG INEFFECTIVE [None]
  - EXTRADURAL ABSCESS [None]
  - GRANULOMA [None]
  - INTRACRANIAL HYPOTENSION [None]
  - LEUKOCYTOSIS [None]
  - SERRATIA INFECTION [None]
